FAERS Safety Report 14364780 (Version 1)
Quarter: 2018Q1

REPORT INFORMATION
  Report Type: Report from Study
  Country: US (occurrence: US)
  Receive Date: 20180108
  Receipt Date: 20180108
  Transmission Date: 20180509
  Serious: No
  Sender: FDA-Public Use
  Company Number: US-RETROPHIN, INC.-2017RTN00108

PATIENT
  Sex: Male

DRUGS (4)
  1. CHOLBAM [Suspect]
     Active Substance: CHOLIC ACID
     Dosage: 350 MG, 1X/DAY
     Dates: start: 20150506, end: 20150726
  2. ADDERALL [Suspect]
     Active Substance: AMPHETAMINE ASPARTATE\AMPHETAMINE SULFATE\DEXTROAMPHETAMINE SACCHARATE\DEXTROAMPHETAMINE SULFATE
     Indication: ATTENTION DEFICIT/HYPERACTIVITY DISORDER
     Dosage: UNK
  3. CHOLBAM [Suspect]
     Active Substance: CHOLIC ACID
     Indication: ADRENOGENITAL SYNDROME
     Dosage: 250 MG, 1X/DAY
     Dates: start: 2015
  4. CHOLBAM [Suspect]
     Active Substance: CHOLIC ACID
     Indication: ADRENOGENITAL SYNDROME
     Dosage: 100 MG, 1X/DAY
     Dates: start: 20150726

REACTIONS (5)
  - Body height below normal [Not Recovered/Not Resolved]
  - Pruritus [Recovered/Resolved]
  - Weight decreased [Not Recovered/Not Resolved]
  - Decreased appetite [Not Recovered/Not Resolved]
  - Weight gain poor [Not Recovered/Not Resolved]

NARRATIVE: CASE EVENT DATE: 2017
